FAERS Safety Report 5125781-3 (Version None)
Quarter: 2006Q4

REPORT INFORMATION
  Report Type: 
  Country: None (occurrence: None)
  Receive Date: 20061010
  Receipt Date: 20061010
  Transmission Date: 20070319
  Serious: Yes (Other)
  Sender: FDA-Public Use
  Company Number: None

PATIENT
  Sex: Female
  Weight: 62.6871 kg

DRUGS (3)
  1. EFFEXOR XR [Suspect]
     Indication: MAJOR DEPRESSION
     Dosage: 75 MG TITRATED QAM PO INCREASED TO 225 Q AM PO
     Route: 048
     Dates: start: 20060403, end: 20061002
  2. ALTACE [Concomitant]
  3. ATARAX [Concomitant]

REACTIONS (4)
  - CONDITION AGGRAVATED [None]
  - DRUG HYPERSENSITIVITY [None]
  - ECZEMA [None]
  - RASH MACULAR [None]
